FAERS Safety Report 5961352-4 (Version None)
Quarter: 2008Q4

REPORT INFORMATION
  Report Type: 
  Country: None (occurrence: None)
  Receive Date: 20081121
  Receipt Date: 20081111
  Transmission Date: 20090506
  Serious: Yes (Hospitalization)
  Sender: FDA-Public Use
  Company Number: JP-ASTRAZENECA-2008AP08913

PATIENT
  Age: 18 Year
  Sex: Female

DRUGS (8)
  1. SEROQUEL [Suspect]
     Route: 048
  2. AMOXAPINE [Suspect]
     Route: 065
  3. CEREGASRON [Suspect]
  4. ERISPAN [Suspect]
  5. LUVOX [Suspect]
  6. ROHYPNOL [Suspect]
  7. SOLANAX [Suspect]
  8. DORAL [Suspect]
     Route: 065

REACTIONS (1)
  - ERYTHEMA MULTIFORME [None]
